FAERS Safety Report 7801332-7 (Version None)
Quarter: 2011Q4

REPORT INFORMATION
  Report Type: 
  Country: None (occurrence: None)
  Receive Date: 20111007
  Receipt Date: 20111004
  Transmission Date: 20120403
  Serious: Yes (Other)
  Sender: FDA-Public Use
  Company Number: US-PFIZER INC-2008036418

PATIENT
  Sex: Male
  Weight: 73.94 kg

DRUGS (4)
  1. DIAMOX SRC [Concomitant]
     Dosage: 100 MG
  2. DILANTIN-125 [Suspect]
     Indication: EPILEPSY
     Dosage: 400MG DAILY
  3. PHENYTOIN [Suspect]
     Dosage: UNK
  4. DILANTIN-125 [Suspect]
     Dosage: 300MG DAILY

REACTIONS (8)
  - IRRITABILITY [None]
  - NERVOUSNESS [None]
  - MALABSORPTION [None]
  - SOMNOLENCE [None]
  - FATIGUE [None]
  - CONVULSION [None]
  - ANTICONVULSANT DRUG LEVEL DECREASED [None]
  - INJURY [None]
